FAERS Safety Report 9614578 (Version 9)
Quarter: 2014Q2

REPORT INFORMATION
  Report Type: Spontaneous
  Country: US (occurrence: US)
  Receive Date: 20131011
  Receipt Date: 20140513
  Transmission Date: 20141212
  Serious: Yes (Hospitalization, Other)
  Sender: FDA-Public Use
  Company Number: PHEH2012US026064

PATIENT
  Sex: Female

DRUGS (15)
  1. AREDIA [Suspect]
     Indication: PLASMA CELL MYELOMA
     Dosage: UNK UKN, UNK
     Route: 042
  2. ZOMETA [Suspect]
     Indication: PLASMA CELL MYELOMA
     Dosage: UNK UKN, UNK
     Route: 042
     Dates: end: 2006
  3. CORTICOSTEROID NOS [Suspect]
  4. EFFEXOR [Concomitant]
  5. WELLBUTRIN SR [Concomitant]
  6. ATIVAN [Concomitant]
  7. TAPAZOLE [Concomitant]
  8. ATENOLOL [Concomitant]
  9. SYNTHROID [Concomitant]
  10. BABY ASPIRIN [Concomitant]
  11. PRILOSEC [Concomitant]
  12. VIVELLE [Concomitant]
  13. ORTHO CYCLEN [Concomitant]
  14. RISPERDAL [Concomitant]
  15. CLONAZEPAM [Concomitant]

REACTIONS (170)
  - Pneumonia [Unknown]
  - Osteonecrosis of jaw [Unknown]
  - Pain [Unknown]
  - Infection [Unknown]
  - Deformity [Unknown]
  - Injury [Unknown]
  - Anxiety [Unknown]
  - Emotional distress [Unknown]
  - Physical disability [Unknown]
  - Bone loss [Not Recovered/Not Resolved]
  - Exposed bone in jaw [Unknown]
  - Impaired healing [Unknown]
  - Pain in jaw [Unknown]
  - Inflammation [Unknown]
  - Haemorrhage [Unknown]
  - Tongue disorder [Unknown]
  - Wound [Unknown]
  - Dental caries [Unknown]
  - Loose tooth [Unknown]
  - Dental plaque [Unknown]
  - Injection site pain [Unknown]
  - Gingival ulceration [Unknown]
  - Depression [Unknown]
  - Hyperthyroidism [Unknown]
  - Tachycardia [Unknown]
  - Exophthalmos [Unknown]
  - Basedow^s disease [Unknown]
  - Typhoid fever [Recovered/Resolved]
  - Memory impairment [Recovering/Resolving]
  - Eye disorder [Unknown]
  - Dyslipidaemia [Unknown]
  - Periorbital oedema [Unknown]
  - Foot deformity [Unknown]
  - Mania [Unknown]
  - Hypothyroidism [Unknown]
  - Exostosis [Unknown]
  - Gastrooesophageal reflux disease [Unknown]
  - Renal impairment [Unknown]
  - Hypertension [Unknown]
  - Dry eye [Unknown]
  - Nasal septum deviation [Unknown]
  - Eyelid retraction [Unknown]
  - Osteolysis [Unknown]
  - Scar [Unknown]
  - Fibrosis [Unknown]
  - Ocular hypertension [Unknown]
  - Bipolar disorder [Unknown]
  - Mitral valve incompetence [Unknown]
  - Tricuspid valve incompetence [Unknown]
  - Plantar fasciitis [Unknown]
  - Vaginal haemorrhage [Unknown]
  - Rectocele [Unknown]
  - Premenstrual dysphoric disorder [Unknown]
  - Suicidal ideation [Unknown]
  - Nystagmus [Unknown]
  - Dysphagia [Unknown]
  - Barrett^s oesophagus [Unknown]
  - Odynophagia [Unknown]
  - Haemorrhoids [Unknown]
  - Colitis [Unknown]
  - Oesophagitis [Unknown]
  - Intervertebral disc protrusion [Unknown]
  - Gastroenteritis salmonella [Unknown]
  - Lung infiltration [Recovering/Resolving]
  - Osteomyelitis [Unknown]
  - Chronic obstructive pulmonary disease [Unknown]
  - Hepatomegaly [Unknown]
  - Cholecystitis [Unknown]
  - Peripheral venous disease [Unknown]
  - Cholelithiasis [Unknown]
  - Scoliosis [Unknown]
  - Gallbladder cholesterolosis [Unknown]
  - Bradycardia [Unknown]
  - Dyssomnia [Unknown]
  - Spinal osteoarthritis [Unknown]
  - Pleural effusion [Unknown]
  - Gallbladder polyp [Unknown]
  - Hypotension [Unknown]
  - Leukocytosis [Unknown]
  - Sepsis [Unknown]
  - Haemoptysis [Unknown]
  - Pharyngitis streptococcal [Unknown]
  - Renal failure chronic [Unknown]
  - Dehydration [Unknown]
  - Infectious mononucleosis [Unknown]
  - Bone lesion [Unknown]
  - Mental disorder [Unknown]
  - Intervertebral disc degeneration [Unknown]
  - Endocrine ophthalmopathy [Unknown]
  - Facial nerve disorder [Unknown]
  - Rib fracture [Unknown]
  - Gallbladder disorder [Unknown]
  - Swelling [Unknown]
  - Tooth deposit [Unknown]
  - Bruxism [Unknown]
  - Tooth discolouration [Unknown]
  - Hypercholesterolaemia [Unknown]
  - Bundle branch block left [Unknown]
  - Toothache [Unknown]
  - Primary sequestrum [Unknown]
  - Periodontitis [Unknown]
  - Pulpitis dental [Unknown]
  - Periodontal disease [Unknown]
  - Irritable bowel syndrome [Unknown]
  - Arthropathy [Unknown]
  - Myositis [Unknown]
  - Bone disorder [Unknown]
  - Chondropathy [Unknown]
  - Atrioventricular block second degree [Unknown]
  - Exostosis of jaw [Unknown]
  - Osteoradionecrosis [Unknown]
  - Type V hyperlipidaemia [Unknown]
  - Conjunctival oedema [Unknown]
  - Soft tissue infection [Unknown]
  - Synovitis [Unknown]
  - Optic nerve disorder [Unknown]
  - Neuralgia [Unknown]
  - Attention deficit/hyperactivity disorder [Unknown]
  - Tooth fracture [Unknown]
  - Gingivitis [Unknown]
  - Seborrhoeic keratosis [Unknown]
  - Melanocytic naevus [Unknown]
  - Fungal infection [Unknown]
  - Arthritis [Unknown]
  - Tendonitis [Unknown]
  - Paronychia [Unknown]
  - Hyperkeratosis [Unknown]
  - Gingival bleeding [Unknown]
  - Cyst [Unknown]
  - Cerumen impaction [Unknown]
  - Ear haemorrhage [Unknown]
  - Enthesopathy [Unknown]
  - Joint effusion [Unknown]
  - Osteosclerosis [Unknown]
  - Keratitis [Unknown]
  - Eyelid ptosis [Unknown]
  - Fall [Unknown]
  - Spinal deformity [Unknown]
  - Ligament sprain [Unknown]
  - Patellofemoral pain syndrome [Unknown]
  - Visual impairment [Unknown]
  - Fracture [Unknown]
  - Musculoskeletal stiffness [Unknown]
  - Joint stiffness [Unknown]
  - Muscle spasticity [Unknown]
  - Joint range of motion decreased [Unknown]
  - Joint dislocation [Unknown]
  - Lacrimation increased [Unknown]
  - Chalazion [Unknown]
  - Optic disc disorder [Unknown]
  - Glaucoma [Unknown]
  - Intraocular pressure increased [Unknown]
  - Eyelid irritation [Unknown]
  - Pain in extremity [Unknown]
  - Groin pain [Unknown]
  - Nasopharyngitis [Unknown]
  - Skin irritation [Unknown]
  - Diplopia [Unknown]
  - Myopia [Unknown]
  - Astigmatism [Unknown]
  - Presbyopia [Unknown]
  - Bursitis [Unknown]
  - Chest pain [Unknown]
  - Asthenia [Unknown]
  - Heart rate irregular [Unknown]
  - Contusion [Unknown]
  - Myalgia [Unknown]
  - Chest discomfort [Unknown]
  - Arthralgia [Unknown]
  - Limb discomfort [Unknown]
